FAERS Safety Report 8069269-9 (Version None)
Quarter: 2012Q1

REPORT INFORMATION
  Report Type: 
  Country: None (occurrence: None)
  Receive Date: 20120125
  Receipt Date: 20120112
  Transmission Date: 20120608
  Serious: Yes (Hospitalization)
  Sender: FDA-Public Use
  Company Number: ES-RANBAXY-2012R3-52003

PATIENT

DRUGS (7)
  1. EBASTINE [Suspect]
     Indication: PRURITUS
     Dosage: 10 MG 1 DOSAGE FORM, 1 DAY
     Route: 048
     Dates: start: 20111112, end: 20111126
  2. ACETAMINOPHEN [Suspect]
     Indication: PRURITUS
     Dosage: UNK
     Route: 048
     Dates: start: 20111112, end: 20111126
  3. POLARAMINE [Suspect]
     Indication: PRURITUS
     Dosage: 12 MG (6 MG, 2 IN 1 DAY)
     Route: 048
     Dates: start: 20111112, end: 20111126
  4. VALSARTAN [Concomitant]
     Indication: HYPERTENSION
     Dosage: 320 MG, ONCE A DAY
     Route: 048
     Dates: start: 20070101, end: 20111127
  5. TRANKIMAZIN RETARD 1 MG COMPRIMIDOS, 30 COMPRIMIDOS [Concomitant]
     Indication: ANXIETY
     Dosage: 1 MG, 1 IN 1 DAY
     Route: 048
     Dates: start: 20110101, end: 20111127
  6. HYDROCHLOROTHIAZIDE [Suspect]
     Indication: HYPERTENSION
     Dosage: 25 MG 1 IN 1 DAY
     Route: 048
     Dates: start: 20070101, end: 20111127
  7. ZOLPIDEM [Concomitant]
     Indication: PRODUCT USED FOR UNKNOWN INDICATION
     Dosage: UNK
     Route: 048
     Dates: start: 20070101, end: 20111127

REACTIONS (4)
  - SOMNOLENCE [None]
  - INAPPROPRIATE ANTIDIURETIC HORMONE SECRETION [None]
  - HYPERBILIRUBINAEMIA [None]
  - ASTHENIA [None]
